FAERS Safety Report 9460123 (Version 2)
Quarter: 2013Q3

REPORT INFORMATION
  Report Type: Spontaneous
  Country: DE (occurrence: DE)
  Receive Date: 20130815
  Receipt Date: 20130829
  Transmission Date: 20140515
  Serious: Yes (Death, Other)
  Sender: FDA-Public Use
  Company Number: DE-PFIZER INC-2013233704

PATIENT
  Age: 69 Year
  Sex: Male

DRUGS (4)
  1. ATORVASTATIN CALCIUM [Suspect]
     Indication: CORONARY ARTERY DISEASE
     Dosage: 80 MG, UNK
     Route: 048
  2. SIMVASTATIN [Interacting]
     Indication: CORONARY ARTERY DISEASE
     Dosage: 80 MG, UNK
     Route: 048
  3. TORASEMIDE [Concomitant]
     Dosage: 10 MG, UNK
     Route: 048
  4. ASS [Concomitant]
     Indication: CORONARY ARTERY DISEASE
     Route: 048

REACTIONS (5)
  - Overdose [Fatal]
  - Renal failure acute [Fatal]
  - Rhabdomyolysis [Fatal]
  - Aspartate aminotransferase increased [Unknown]
  - Drug interaction [Unknown]
